FAERS Safety Report 5018949-8 (Version None)
Quarter: 2006Q2

REPORT INFORMATION
  Report Type: 
  Country: None (occurrence: None)
  Receive Date: 20060606
  Receipt Date: 20060531
  Transmission Date: 20061013
  Serious: Yes (Life-Threatening)
  Sender: FDA-Public Use
  Company Number: 2006AP02484

PATIENT
  Age: 71 Year
  Sex: Male
  Weight: 51 kg

DRUGS (7)
  1. DIPRIVAN [Suspect]
     Indication: INDUCTION OF ANAESTHESIA
     Route: 042
  2. DIPRIVAN [Suspect]
     Indication: MAINTENANCE OF ANAESTHESIA
     Route: 042
  3. AMIODARONE HCL [Suspect]
     Indication: VENTRICULAR TACHYCARDIA
     Route: 048
  4. NEOSTIGMINE METHYLSULFATE [Suspect]
     Indication: HYPOTONIA
     Route: 065
  5. FENTANYL CITRATE [Concomitant]
     Indication: INDUCTION OF ANAESTHESIA
  6. VECURONIUM BROMIDE [Concomitant]
     Indication: INDUCTION OF ANAESTHESIA
  7. ATROPINE SULFATE [Concomitant]
     Indication: HYPOTONIA

REACTIONS (4)
  - BLOOD PRESSURE INADEQUATELY CONTROLLED [None]
  - HEART RATE DECREASED [None]
  - NODAL RHYTHM [None]
  - VENTRICULAR TACHYCARDIA [None]
